FAERS Safety Report 8187221-X (Version None)
Quarter: 2012Q1

REPORT INFORMATION
  Report Type: 
  Country: None (occurrence: None)
  Receive Date: 20120301
  Receipt Date: 20120222
  Transmission Date: 20120608
  Serious: Yes (Hospitalization, Disabling)
  Sender: FDA-Public Use
  Company Number: 2011SP048235

PATIENT
  Age: 32 Year
  Sex: Female
  Weight: 92.9874 kg

DRUGS (5)
  1. NUVARING [Suspect]
     Indication: CONTRACEPTION
     Dates: start: 20090501, end: 20091130
  2. HYDROCHLOROTHIAZIDE [Concomitant]
  3. MOTRIN [Concomitant]
  4. K-TAB [Concomitant]
  5. NASACORT AQ [Concomitant]

REACTIONS (7)
  - LOBAR PNEUMONIA [None]
  - PULMONARY EMBOLISM [None]
  - IMPAIRED WORK ABILITY [None]
  - THROMBOSIS [None]
  - MUSCLE SPASMS [None]
  - ANAEMIA [None]
  - HYPOKALAEMIA [None]
